FAERS Safety Report 22144619 (Version 2)
Quarter: 2023Q1

REPORT INFORMATION
  Report Type: Spontaneous
  Country: ES (occurrence: ES)
  Receive Date: 20230328
  Receipt Date: 20230331
  Transmission Date: 20230417
  Serious: Yes (Congenital Anomaly)
  Sender: FDA-Public Use
  Company Number: None

PATIENT
  Sex: Female

DRUGS (4)
  1. TECFIDERA [Suspect]
     Active Substance: DIMETHYL FUMARATE
     Indication: Relapsing-remitting multiple sclerosis
     Route: 050
     Dates: start: 20220301
  2. ASPIRIN [Concomitant]
     Active Substance: ASPIRIN
     Indication: In vitro fertilisation
     Route: 050
     Dates: start: 20220527
  3. PANTOPRAZOLE [Concomitant]
     Active Substance: PANTOPRAZOLE
     Indication: Product used for unknown indication
     Route: 050
     Dates: start: 202203
  4. Natalben Preconceptivo (DIET?TICO) [Concomitant]
     Indication: Product used for unknown indication
     Route: 050
     Dates: start: 20220527

REACTIONS (2)
  - Exposure during pregnancy [Recovered/Resolved]
  - Pulmonary artery stenosis congenital [Not Recovered/Not Resolved]

NARRATIVE: CASE EVENT DATE: 20220527
